FAERS Safety Report 7609467-9 (Version None)
Quarter: 2011Q3

REPORT INFORMATION
  Report Type: 
  Country: None (occurrence: None)
  Receive Date: 20110713
  Receipt Date: 20110713
  Transmission Date: 20111222
  Serious: Yes (Other)
  Sender: FDA-Public Use
  Company Number: None

PATIENT
  Age: 59 Year
  Sex: Male
  Weight: 111.1313 kg

DRUGS (1)
  1. LUPRON [Suspect]
     Indication: PROSTATE CANCER
     Dosage: 1 4MONTH SLOW RELEAS

REACTIONS (15)
  - HOT FLUSH [None]
  - ARTHRALGIA [None]
  - POST-TRAUMATIC STRESS DISORDER [None]
  - ASTHENIA [None]
  - CRYING [None]
  - DEPRESSION [None]
  - FALL [None]
  - NAUSEA [None]
  - FATIGUE [None]
  - ANURIA [None]
  - WEIGHT INCREASED [None]
  - BONE PAIN [None]
  - MALAISE [None]
  - MOTOR DYSFUNCTION [None]
  - CONDITION AGGRAVATED [None]
